FAERS Safety Report 6005808-7 (Version None)
Quarter: 2008Q4

REPORT INFORMATION
  Report Type: 
  Country: None (occurrence: None)
  Receive Date: 20081217
  Receipt Date: 20080822
  Transmission Date: 20090506
  Serious: Yes (Other)
  Sender: FDA-Public Use
  Company Number: DE-BAYER-200832108GPV

PATIENT
  Age: 89 Year
  Sex: Female

DRUGS (6)
  1. ASPIRIN [Suspect]
     Indication: PERIPHERAL VASCULAR DISORDER
     Route: 048
     Dates: start: 20080501, end: 20080508
  2. MICARDIS [Suspect]
     Indication: ESSENTIAL HYPERTENSION
     Route: 048
     Dates: end: 20080507
  3. NIFEDIPINE [Suspect]
     Indication: ESSENTIAL HYPERTENSION
     Route: 048
     Dates: start: 20080428, end: 20080508
  4. ESOMEPRAZOLE MAGNESIUM [Suspect]
     Indication: DRUG USE FOR UNKNOWN INDICATION
     Route: 048
     Dates: end: 20080507
  5. FLOXACILLIN SODIUM [Suspect]
     Indication: INFECTION
     Route: 048
     Dates: start: 20080501, end: 20080507
  6. LACTULOSE [Concomitant]
     Indication: CONSTIPATION
     Route: 048
     Dates: start: 20080429

REACTIONS (1)
  - TUBULOINTERSTITIAL NEPHRITIS [None]
